FAERS Safety Report 15721459 (Version 5)
Quarter: 2022Q1

REPORT INFORMATION
  Report Type: Other
  Country: DE (occurrence: None)
  Receive Date: 20181214
  Receipt Date: 20220118
  Transmission Date: 20220424
  Serious: No
  Sender: FDA-Public Use
  Company Number: DE-ROCHE-2150140

PATIENT
  Age: 55 Year
  Sex: Female

DRUGS (9)
  1. OCREVUS [Suspect]
     Active Substance: OCRELIZUMAB
     Indication: Primary progressive multiple sclerosis
     Route: 042
     Dates: start: 20171101
  2. OCREVUS [Suspect]
     Active Substance: OCRELIZUMAB
     Dosage: MAY/2018 3RD INFUSION?14/NOV/2018 FOURTH INFUSION
     Route: 042
     Dates: start: 20171101
  3. OCREVUS [Suspect]
     Active Substance: OCRELIZUMAB
     Route: 042
     Dates: start: 20200526
  4. OCREVUS [Suspect]
     Active Substance: OCRELIZUMAB
     Route: 042
     Dates: start: 202012
  5. OCREVUS [Suspect]
     Active Substance: OCRELIZUMAB
     Route: 042
     Dates: start: 20210621
  6. COMIRNATY [Suspect]
     Active Substance: TOZINAMERAN
     Indication: Product used for unknown indication
     Route: 065
  7. INFLUENZA VIRUS VACCINE [Suspect]
     Active Substance: INFLUENZA VIRUS VACCINE
     Indication: Product used for unknown indication
     Route: 065
  8. DALFAMPRIDINE [Concomitant]
     Active Substance: DALFAMPRIDINE
  9. LEVOTHYROXINE SODIUM [Concomitant]
     Active Substance: LEVOTHYROXINE SODIUM
     Dosage: 1-0-0

REACTIONS (13)
  - Off label use [Unknown]
  - Nasopharyngitis [Recovered/Resolved]
  - Sleep disorder [Recovered/Resolved]
  - Arthralgia [Recovered/Resolved]
  - Nerve compression [Not Recovered/Not Resolved]
  - Tonsillitis [Recovered/Resolved]
  - White blood cell count decreased [Recovered/Resolved]
  - Liver function test increased [Recovered/Resolved]
  - Myopia [Not Recovered/Not Resolved]
  - COVID-19 [Recovered/Resolved]
  - Lenticular opacities [Recovering/Resolving]
  - Immunoglobulins abnormal [Recovered/Resolved]
  - Fatigue [Recovered/Resolved]

NARRATIVE: CASE EVENT DATE: 20181019
